FAERS Safety Report 13269379 (Version 3)
Quarter: 2017Q1

REPORT INFORMATION
  Report Type: Spontaneous
  Country: DE (occurrence: DE)
  Receive Date: 20170224
  Receipt Date: 20170320
  Transmission Date: 20170428
  Serious: Yes (Hospitalization)
  Sender: FDA-Public Use
  Company Number: DE-PFIZER INC-2017077849

PATIENT
  Age: 68 Year
  Sex: Female

DRUGS (6)
  1. CARMEN [Concomitant]
     Active Substance: LERCANIDIPINE
     Dosage: 10 MG, 1X/DAY (1-0-0)
  2. BELOC-ZOK MITE [Concomitant]
     Active Substance: METOPROLOL SUCCINATE
     Dosage: 90 MG, 1X/DAY (1-0-0)
  3. KARVEA [Concomitant]
     Active Substance: IRBESARTAN
     Dosage: 300 MG, 1X/DAY (1-0-0)
  4. LETROZOL [Concomitant]
     Active Substance: LETROZOLE
     Dosage: 2.5 MG, 1X/DAY (1-0-0)
     Dates: start: 20170130
  5. IBRANCE [Suspect]
     Active Substance: PALBOCICLIB
     Indication: BREAST CANCER METASTATIC
     Dosage: 125 MG, DAILY (1-0-0)
     Dates: start: 20170130, end: 20170217
  6. XGEVA [Concomitant]
     Active Substance: DENOSUMAB
     Dosage: UNK
     Dates: start: 20170216

REACTIONS (11)
  - Mucosal dryness [Unknown]
  - Thrombocytopenia [Recovered/Resolved]
  - Feeling abnormal [Recovered/Resolved]
  - Contusion [Recovered/Resolved]
  - Mucosal inflammation [Unknown]
  - Weight decreased [Unknown]
  - Decreased appetite [Unknown]
  - Leukopenia [Recovered/Resolved]
  - Dermatitis [Recovered/Resolved]
  - Epistaxis [Recovered/Resolved]
  - Skin haemorrhage [Recovered/Resolved]

NARRATIVE: CASE EVENT DATE: 20170130
